FAERS Safety Report 8570466-4 (Version None)
Quarter: 2012Q3

REPORT INFORMATION
  Report Type: 
  Country: None (occurrence: None)
  Receive Date: 20120803
  Receipt Date: 20120725
  Transmission Date: 20120928
  Serious: Yes (Other)
  Sender: FDA-Public Use
  Company Number: US-ASTRAZENECA-2012SE52586

PATIENT
  Age: 55 Year
  Sex: Female
  Weight: 91.6 kg

DRUGS (12)
  1. NEXIUM [Suspect]
     Indication: GASTROOESOPHAGEAL REFLUX DISEASE
     Route: 048
     Dates: start: 19950101, end: 19960101
  2. HORMONES [Concomitant]
  3. LOVASTATIN [Concomitant]
     Indication: BLOOD CHOLESTEROL ABNORMAL
     Dates: start: 19920101
  4. ZYRTEC [Concomitant]
     Indication: MULTIPLE ALLERGIES
  5. BENADRYL [Concomitant]
     Indication: MULTIPLE ALLERGIES
  6. LEVOTHYROXINE SODIUM [Concomitant]
     Indication: HYPOTHYROIDISM
     Route: 048
     Dates: start: 19930101
  7. ALBUTEROL SULPHATE [Concomitant]
     Indication: ASTHMA
  8. OMEPRAZOLE [Suspect]
     Indication: GASTROOESOPHAGEAL REFLUX DISEASE
     Route: 048
     Dates: start: 20120401
  9. FLONASE [Concomitant]
     Indication: HYPERSENSITIVITY
  10. NEXIUM [Suspect]
     Route: 048
     Dates: start: 20100101, end: 20110101
  11. QVAR 40 [Concomitant]
     Indication: ASTHMA
     Route: 055
  12. LISINOPRIL [Concomitant]
     Indication: HYPERTENSION
     Dates: start: 19920101

REACTIONS (18)
  - HIATUS HERNIA [None]
  - DYSPNOEA [None]
  - EAR PAIN [None]
  - MULTIPLE ALLERGIES [None]
  - DYSPHONIA [None]
  - INTENTIONAL DRUG MISUSE [None]
  - DYSPHAGIA [None]
  - ASTHMA [None]
  - BARRETT'S OESOPHAGUS [None]
  - HAEMATEMESIS [None]
  - PRECANCEROUS MUCOSAL LESION [None]
  - GASTROOESOPHAGEAL REFLUX DISEASE [None]
  - BLOOD CHOLESTEROL INCREASED [None]
  - ABDOMINAL DISCOMFORT [None]
  - OROPHARYNGEAL PAIN [None]
  - SINUS CONGESTION [None]
  - ENAMEL ANOMALY [None]
  - VOMITING [None]
